FAERS Safety Report 8282448-0 (Version None)
Quarter: 2012Q2

REPORT INFORMATION
  Report Type: 
  Country: None (occurrence: None)
  Receive Date: 20120413
  Receipt Date: 20120409
  Transmission Date: 20120825
  Serious: Yes (Other)
  Sender: FDA-Public Use
  Company Number: US-JNJFOC-20120403922

PATIENT
  Sex: Female
  Weight: 51.26 kg

DRUGS (1)
  1. PANCREAZE [Suspect]
     Indication: CYSTIC FIBROSIS
     Dosage: BEFORE MEALS OR SNACKS
     Route: 048

REACTIONS (5)
  - DRUG DOSE OMISSION [None]
  - METABOLIC DISORDER [None]
  - WEIGHT INCREASED [None]
  - RESPIRATORY FAILURE [None]
  - PRODUCT CONTAINER ISSUE [None]
